FAERS Safety Report 17780134 (Version 13)
Quarter: 2022Q1

REPORT INFORMATION
  Report Type: Spontaneous
  Country: CA (occurrence: CA)
  Receive Date: 20200514
  Receipt Date: 20220331
  Transmission Date: 20220423
  Serious: Yes (Other)
  Sender: FDA-Public Use
  Company Number: CA-CELLTRION INC.-2020CA019614

PATIENT

DRUGS (17)
  1. INFLECTRA [Suspect]
     Active Substance: INFLIXIMAB-DYYB
     Indication: Crohn^s disease
     Dosage: 5 MG/KG (400 MG), EVERY 6 WEEKS
     Route: 042
     Dates: start: 20200214
  2. INFLECTRA [Suspect]
     Active Substance: INFLIXIMAB-DYYB
     Dosage: 5 MG/KG (400 MG), EVERY 6 WEEKS
     Route: 042
     Dates: start: 20200324
  3. INFLECTRA [Suspect]
     Active Substance: INFLIXIMAB-DYYB
     Dosage: 5 MG/KG (400 MG), EVERY 6 WEEKS
     Route: 042
     Dates: start: 20200506
  4. INFLECTRA [Suspect]
     Active Substance: INFLIXIMAB-DYYB
     Dosage: 5 MG/KG (400 MG), EVERY 6 WEEKS
     Route: 042
     Dates: start: 20200615
  5. INFLECTRA [Suspect]
     Active Substance: INFLIXIMAB-DYYB
     Dosage: 5 MG/KG (400 MG), EVERY 6 WEEKS
     Route: 042
     Dates: start: 20200909
  6. INFLECTRA [Suspect]
     Active Substance: INFLIXIMAB-DYYB
     Dosage: 5 MG/KG (400 MG), EVERY 6 WEEKS
     Route: 042
     Dates: start: 20201020
  7. INFLECTRA [Suspect]
     Active Substance: INFLIXIMAB-DYYB
     Dosage: 5 MG/KG (400 MG) EVERY 6 WEEKS
     Route: 042
     Dates: start: 20201201
  8. INFLECTRA [Suspect]
     Active Substance: INFLIXIMAB-DYYB
     Dosage: 5 MG/KG (400 MG) EVERY 6 WEEKS
     Route: 042
     Dates: start: 20210112
  9. INFLECTRA [Suspect]
     Active Substance: INFLIXIMAB-DYYB
     Dosage: 5 MG/KG (400 MG) EVERY 6 WEEKS
     Route: 042
     Dates: start: 20210406
  10. INFLECTRA [Suspect]
     Active Substance: INFLIXIMAB-DYYB
     Dosage: 5 MG/KG (400 MG) EVERY 6 WEEKS
     Route: 042
     Dates: start: 20210518
  11. INFLECTRA [Suspect]
     Active Substance: INFLIXIMAB-DYYB
     Dosage: 5 MG/KG (400 MG) EVERY 6 WEEKS
     Route: 042
     Dates: start: 20210707
  12. INFLECTRA [Suspect]
     Active Substance: INFLIXIMAB-DYYB
     Dosage: 5 MG/KG (400 MG) EVERY 6 WEEKS
     Route: 042
     Dates: start: 20210817
  13. INFLECTRA [Suspect]
     Active Substance: INFLIXIMAB-DYYB
     Dosage: 5 MG/KG (400 MG) EVERY 6 WEEKS
     Route: 042
     Dates: start: 20210929
  14. INFLECTRA [Suspect]
     Active Substance: INFLIXIMAB-DYYB
     Dosage: 5 MG/KG (400 MG) EVERY 6 WEEKS
     Route: 042
     Dates: start: 20211123
  15. INFLECTRA [Suspect]
     Active Substance: INFLIXIMAB-DYYB
     Dosage: 5 MG/KG (400 MG) EVERY 6 WEEKS
     Route: 042
     Dates: start: 20211123
  16. INFLECTRA [Suspect]
     Active Substance: INFLIXIMAB-DYYB
     Dosage: 5 MG/KG (400 MG) EVERY 6 WEEKS
     Route: 042
     Dates: start: 20220203
  17. INFLECTRA [Suspect]
     Active Substance: INFLIXIMAB-DYYB
     Dosage: 5 MG/KG (400 MG) EVERY 6 WEEKS
     Route: 042
     Dates: start: 20220317

REACTIONS (10)
  - Condition aggravated [Recovered/Resolved]
  - Weight increased [Recovered/Resolved]
  - Off label use [Unknown]
  - Intentional product use issue [Unknown]
  - Incorrect dose administered [Unknown]
  - Inappropriate schedule of product administration [Unknown]
  - Off label use [Unknown]
  - Weight decreased [Unknown]
  - Arthralgia [Unknown]
  - COVID-19 [Not Recovered/Not Resolved]

NARRATIVE: CASE EVENT DATE: 20200214
